FAERS Safety Report 12874204 (Version 1)
Quarter: 2016Q4

REPORT INFORMATION
  Report Type: Spontaneous
  Country: TW (occurrence: TW)
  Receive Date: 20161021
  Receipt Date: 20161021
  Transmission Date: 20170207
  Serious: Yes (Other)
  Sender: FDA-Public Use
  Company Number: PHHY2016TW142964

PATIENT
  Age: 36 Year
  Sex: Female

DRUGS (1)
  1. TOPIRAMATE. [Suspect]
     Active Substance: TOPIRAMATE
     Indication: MEDICAL DIET
     Route: 065

REACTIONS (4)
  - Myopia [Recovered/Resolved]
  - Glaucoma [Recovered/Resolved]
  - Uveitis [Recovered/Resolved]
  - Choroidal effusion [Recovered/Resolved]
